FAERS Safety Report 11608144 (Version 1)
Quarter: 2015Q3

REPORT INFORMATION
  Report Type: Spontaneous
  Country: US (occurrence: US)
  Receive Date: 20150916
  Receipt Date: 20150916
  Transmission Date: 20151125
  Serious: No
  Sender: FDA-Public Use
  Company Number: US-ELI_LILLY_AND_COMPANY-US201312000974

PATIENT
  Age: 51 Year
  Sex: Male

DRUGS (3)
  1. HUMALOG MIX75/25 [Suspect]
     Active Substance: INSULIN LISPRO
     Indication: DIABETES MELLITUS
     Dosage: 15 U, EACH MORNING
     Route: 065
     Dates: start: 201309
  2. HUMALOG MIX75/25 [Suspect]
     Active Substance: INSULIN LISPRO
     Dosage: 10 U, EACH EVENING
     Route: 065
     Dates: start: 201309
  3. GLIPIZIDE W/METFORMIN HYDROCHLORIDE [Concomitant]
     Dosage: 2 DF, BID

REACTIONS (6)
  - Haemoglobin decreased [Unknown]
  - Heart rate increased [Unknown]
  - Headache [Unknown]
  - Dizziness [Unknown]
  - Blood glucose decreased [Unknown]
  - Tremor [Unknown]

NARRATIVE: CASE EVENT DATE: 201310
